FAERS Safety Report 10141784 (Version 1)
Quarter: 2014Q2

REPORT INFORMATION
  Report Type: Spontaneous
  Country: FR (occurrence: FR)
  Receive Date: 20140429
  Receipt Date: 20140429
  Transmission Date: 20141212
  Serious: Yes (Life-Threatening)
  Sender: FDA-Public Use
  Company Number: FR-BRISTOL-MYERS SQUIBB COMPANY-20681011

PATIENT
  Age: 69 Year
  Sex: Male

DRUGS (6)
  1. METFORMIN HCL [Suspect]
     Indication: TYPE 2 DIABETES MELLITUS
     Route: 048
     Dates: start: 200804
  2. LEVOTHYROX [Suspect]
     Indication: THYROIDITIS
     Route: 048
     Dates: start: 2003
  3. PREVISCAN [Suspect]
     Indication: THROMBOSIS PROPHYLAXIS
     Route: 048
     Dates: start: 200310
  4. COKENZEN [Suspect]
     Dosage: 1DF:8MG/12.5MG
  5. CORDARONE [Suspect]
     Indication: ATRIAL FIBRILLATION
     Route: 048
  6. ALLOPURINOL [Suspect]
     Indication: HYPERURICAEMIA
     Route: 048

REACTIONS (1)
  - Metastasis [Recovered/Resolved with Sequelae]
